FAERS Safety Report 7551045-4 (Version None)
Quarter: 2011Q2

REPORT INFORMATION
  Report Type: 
  Country: None (occurrence: None)
  Receive Date: 20110616
  Receipt Date: 20101217
  Transmission Date: 20111010
  Serious: Yes (Hospitalization, Other)
  Sender: FDA-Public Use
  Company Number: DE-BAYER-2010-003345

PATIENT
  Age: 51 Year
  Sex: Male

DRUGS (15)
  1. NOVAMINSULFON [Concomitant]
     Dosage: 1000
     Dates: start: 20101021, end: 20101207
  2. PASTACINCIMOLLISSINELANOL [Concomitant]
     Dosage: UNK
     Dates: start: 20100910, end: 20101207
  3. PALLADONE [Concomitant]
     Dosage: 8/16
     Dates: start: 20100901
  4. OMEPRAZOLE [Concomitant]
     Dosage: 80
     Dates: start: 20100901
  5. LANTUS [Concomitant]
  6. SORAFENIB [Suspect]
     Indication: RENAL CELL CARCINOMA
     Dosage: UNK
     Route: 048
     Dates: start: 20100825, end: 20101207
  7. VERGENTAN [Concomitant]
     Dosage: UNK
     Dates: start: 20101004
  8. CLOTRIMAZOL [Concomitant]
     Dosage: 20 MG
     Dates: start: 20100910, end: 20101207
  9. TRIMAPENIDAT [Concomitant]
     Dosage: DAILY DOSE 125 MG
     Dates: end: 20100913
  10. LORAZEPAM [Concomitant]
     Dosage: 0.5
     Dates: start: 20100814
  11. TRIAMCINOLONE [Concomitant]
     Dosage: 0.3 MG
     Dates: start: 20100910, end: 20101207
  12. TERBINAFINE HCL [Concomitant]
     Dosage: DAILY DOSE 250 MG
     Dates: start: 20101203, end: 20101230
  13. LYRICA [Concomitant]
     Dosage: DAILY DOSE 900 MG
     Dates: start: 20000101
  14. SORAFENIB (RAF KINASE INHIBITOR) [Suspect]
     Indication: RENAL CELL CARCINOMA
     Dosage: UNK
     Dates: start: 20100825, end: 20101207
  15. METFORMIN HCL [Concomitant]
     Dosage: DAILY DOSE 1000 MG

REACTIONS (2)
  - INTERTRIGO CANDIDA [None]
  - OEDEMA PERIPHERAL [None]
